FAERS Safety Report 7716784-0 (Version None)
Quarter: 2011Q3

REPORT INFORMATION
  Report Type: 
  Country: None (occurrence: None)
  Receive Date: 20110829
  Receipt Date: 20110818
  Transmission Date: 20111222
  Serious: Yes (Hospitalization)
  Sender: FDA-Public Use
  Company Number: US-ASTRAZENECA-2011SE42926

PATIENT
  Age: 72 Year
  Sex: Male

DRUGS (9)
  1. MELATONIN [Concomitant]
     Route: 048
  2. OXYCODONE/ACETAMINOPHEN [Concomitant]
     Dosage: 5-325 MG AS NEEDED
     Route: 048
  3. CORTIZONE-10 [Concomitant]
     Indication: ECZEMA
     Route: 061
  4. VANDETANIB [Suspect]
     Indication: THYROID CANCER
     Route: 048
     Dates: start: 20110704
  5. THEANINE [Concomitant]
     Dosage: AT NIGHT
  6. LEVOTHROID [Concomitant]
     Route: 048
  7. CLONAZEPAM [Concomitant]
     Route: 048
  8. CYCLOBENZAPRINE HCL [Concomitant]
     Route: 048
  9. LEMON BALM [Concomitant]

REACTIONS (4)
  - APHASIA [None]
  - MUSCLE STRAIN [None]
  - DIARRHOEA [None]
  - FALL [None]
